FAERS Safety Report 9988695 (Version 1)
Quarter: 2014Q1

REPORT INFORMATION
  Report Type: Spontaneous
  Country: IT (occurrence: IT)
  Receive Date: 20140310
  Receipt Date: 20140310
  Transmission Date: 20141002
  Serious: Yes (Other)
  Sender: FDA-Public Use
  Company Number: IT-ROCHE-1361810

PATIENT
  Age: 49 Year
  Sex: Male
  Weight: 83 kg

DRUGS (4)
  1. COPEGUS [Suspect]
     Indication: ANTIVIRAL TREATMENT
     Route: 048
     Dates: start: 20130906, end: 20140224
  2. PEGASYS [Interacting]
     Indication: ANTIVIRAL TREATMENT
     Route: 058
     Dates: start: 20130906, end: 20140224
  3. INCIVO [Interacting]
     Indication: ANTIVIRAL TREATMENT
     Route: 048
     Dates: start: 20131015, end: 20140107
  4. BINOCRIT [Concomitant]

REACTIONS (2)
  - Pancytopenia [Recovering/Resolving]
  - Drug interaction [Unknown]
